FAERS Safety Report 23901893 (Version 3)
Quarter: 2024Q4

REPORT INFORMATION
  Report Type: Spontaneous
  Country: US (occurrence: US)
  Receive Date: 20240526
  Receipt Date: 20241021
  Transmission Date: 20250115
  Serious: Yes (Other)
  Sender: ROCHE
  Company Number: US-ROCHE-3515242

PATIENT
  Age: 38 Year
  Sex: Female

DRUGS (2)
  1. OCRELIZUMAB [Suspect]
     Active Substance: OCRELIZUMAB
     Indication: Relapsing-remitting multiple sclerosis
     Route: 042
  2. OZANIMOD [Concomitant]
     Active Substance: OZANIMOD
     Indication: Relapsing-remitting multiple sclerosis

REACTIONS (1)
  - Neutropenia [Recovered/Resolved]
